FAERS Safety Report 25958327 (Version 1)
Quarter: 2025Q4

REPORT INFORMATION
  Report Type: Report from Study
  Country: KR (occurrence: KR)
  Receive Date: 20251024
  Receipt Date: 20251024
  Transmission Date: 20260118
  Serious: Yes (Other)
  Sender: BAUSCH AND LOMB
  Company Number: KR-BAUSCHBL-2025BNL030494

PATIENT
  Age: 75 Year
  Sex: Male
  Weight: 72.5 kg

DRUGS (11)
  1. VYZULTA [Suspect]
     Active Substance: LATANOPROSTENE BUNOD
     Indication: Open angle glaucoma
     Dosage: LEFT EYE
     Route: 047
     Dates: end: 20250120
  2. Bukwang Methimazole [Concomitant]
     Indication: Hyperthyroidism
     Route: 048
  3. HARNAL [Concomitant]
     Active Substance: TAMSULOSIN HYDROCHLORIDE
     Indication: Benign prostatic hyperplasia
     Route: 048
  4. PROSCAR [Concomitant]
     Active Substance: FINASTERIDE
     Indication: Benign prostatic hyperplasia
     Route: 048
  5. DORZOLAMIDE HYDROCHLORIDE AND TIMOLOL MALEATE [Concomitant]
     Active Substance: DORZOLAMIDE HYDROCHLORIDE\TIMOLOL MALEATE
     Indication: Open angle glaucoma
     Route: 047
     Dates: start: 20220509
  6. COMBIGAN [Concomitant]
     Active Substance: BRIMONIDINE TARTRATE\TIMOLOL MALEATE
     Indication: Open angle glaucoma
     Route: 047
     Dates: start: 20240219
  7. KYNEX [Concomitant]
     Active Substance: SULFAMETHOXYPYRIDAZINE
     Indication: Prophylaxis
     Route: 047
     Dates: start: 20220509
  8. PIRENOXINE [Concomitant]
     Active Substance: PIRENOXINE
     Indication: Cataract
     Route: 047
     Dates: start: 20220509
  9. CHOLINE ALFOSCERATE [Concomitant]
     Active Substance: CHOLINE ALFOSCERATE
     Indication: Prophylaxis
     Route: 048
     Dates: start: 20221114
  10. LATANOPROST [Concomitant]
     Active Substance: LATANOPROST
     Indication: Open angle glaucoma
     Route: 047
     Dates: start: 20221114, end: 20241027
  11. New Hyaluni [Concomitant]
     Indication: Prophylaxis
     Route: 047
     Dates: start: 20240624, end: 20241027

REACTIONS (1)
  - Posterior capsule opacification [Recovering/Resolving]

NARRATIVE: CASE EVENT DATE: 20250120
